FAERS Safety Report 4476279-7 (Version None)
Quarter: 2004Q3

REPORT INFORMATION
  Report Type: 
  Country: None (occurrence: None)
  Receive Date: 20040923
  Receipt Date: 20040727
  Transmission Date: 20050211
  Serious: Yes (Other)
  Sender: FDA-Public Use
  Company Number: USA040773882

PATIENT
  Age: 75 Year
  Sex: Female

DRUGS (9)
  1. EVISTA [Suspect]
     Indication: OSTEOPOROSIS
  2. FORTEO [Suspect]
     Indication: OSTEOPOROSIS
     Dates: start: 20040723
  3. SYNTHROID [Concomitant]
  4. MULTIVITAMIN [Concomitant]
  5. CALCIUM [Concomitant]
  6. ASPIRIN [Concomitant]
  7. GARLIC [Concomitant]
  8. FOSAMAX (ALENDRAONATE SODIUM) [Concomitant]
  9. ACTONEL (RISEDRONATE SODIUM0 [Concomitant]

REACTIONS (4)
  - DEEP VEIN THROMBOSIS [None]
  - FEELING ABNORMAL [None]
  - HEADACHE [None]
  - MUSCLE CRAMP [None]
